FAERS Safety Report 5284789-8 (Version None)
Quarter: 2007Q1

REPORT INFORMATION
  Report Type: 
  Country: None (occurrence: None)
  Receive Date: 20061229
  Receipt Date: 20060324
  Transmission Date: 20070707
  Serious: Yes (Other)
  Sender: FDA-Public Use
  Company Number: PHEH2006US03947

PATIENT
  Sex: 0

DRUGS (1)
  1. CLOZARIL [Suspect]
     Dosage: ORAL
     Route: 048

REACTIONS (1)
  - ANTIPSYCHOTIC DRUG LEVEL INCREASED [None]
